FAERS Safety Report 5818019-2 (Version None)
Quarter: 2008Q3

REPORT INFORMATION
  Report Type: 
  Country: None (occurrence: None)
  Receive Date: 20080722
  Receipt Date: 20080124
  Transmission Date: 20090109
  Serious: No
  Sender: FDA-Public Use
  Company Number: US-BOEHRINGER INGELHEIM GMBH, GERMANY-2007-BP-12165BP

PATIENT
  Sex: Female
  Weight: 86 kg

DRUGS (26)
  1. MIRAPEX [Suspect]
     Indication: RESTLESS LEGS SYNDROME
     Route: 048
     Dates: start: 20000929, end: 20061001
  2. SYNTHROID [Concomitant]
     Indication: HYPOTHYROIDISM
  3. ATENOLOL [Concomitant]
     Indication: HYPERTENSION
     Dates: start: 19991001
  4. CAPTOPRIL [Concomitant]
     Indication: HYPERTENSION
     Dates: start: 20000901, end: 20010101
  5. GLUCOPHAGE [Concomitant]
     Indication: TYPE 2 DIABETES MELLITUS
     Dates: start: 20001001
  6. PREVACID [Concomitant]
     Dates: start: 19990101, end: 20050801
  7. BENTYL [Concomitant]
  8. SINEMET [Concomitant]
     Indication: RESTLESS LEGS SYNDROME
     Dates: start: 20000401, end: 20030301
  9. VITAMIN E [Concomitant]
  10. ASCORBIC ACID [Concomitant]
  11. VITAMIN A [Concomitant]
  12. MULTI-VITAMIN [Concomitant]
  13. ZESTRIL [Concomitant]
     Dates: start: 20010101
  14. HYDROCHLOROTHIAZIDE [Concomitant]
  15. ULTRAM [Concomitant]
     Dates: start: 19980101
  16. LISINOPRIL [Concomitant]
     Dates: start: 20050201
  17. AMARYL [Concomitant]
     Dates: start: 20050501
  18. PRILOSEC OTC [Concomitant]
     Dates: start: 20050101
  19. TRICOR [Concomitant]
     Indication: BLOOD TRIGLYCERIDES INCREASED
     Dates: start: 20050801
  20. DIOVAN HCT [Concomitant]
  21. CLONOPIN [Concomitant]
     Indication: RESTLESSNESS
     Dates: start: 20010301
  22. VIOXX [Concomitant]
  23. CYMBALTA [Concomitant]
     Dates: start: 20050201
  24. GLIMEPIRIDE [Concomitant]
     Dates: start: 20060201
  25. LOTENSIN [Concomitant]
     Indication: HYPERTENSION
     Dates: start: 20010901
  26. XENIEAL [Concomitant]
     Indication: WEIGHT DECREASED
     Dates: start: 20010919

REACTIONS (7)
  - COMPULSIVE SHOPPING [None]
  - DEPRESSION [None]
  - EMOTIONAL DISTRESS [None]
  - HYPERPHAGIA [None]
  - OBSESSIVE-COMPULSIVE DISORDER [None]
  - PATHOLOGICAL GAMBLING [None]
  - WEIGHT INCREASED [None]
